FAERS Safety Report 23322004 (Version 3)
Quarter: 2024Q2

REPORT INFORMATION
  Report Type: Report from Study
  Country: JP (occurrence: JP)
  Receive Date: 20231220
  Receipt Date: 20240625
  Transmission Date: 20240716
  Serious: Yes (Hospitalization, Other)
  Sender: FDA-Public Use
  Company Number: JP-ALNYLAM PHARMACEUTICALS, INC.-ALN-2023-006742

PATIENT

DRUGS (9)
  1. AMVUTTRA [Suspect]
     Active Substance: VUTRISIRAN
     Indication: Hereditary neuropathic amyloidosis
     Dosage: 25 MILLIGRAM, Q3M
     Route: 058
     Dates: start: 20230328, end: 20230620
  2. ELNEOPA NF NO.1 [Concomitant]
     Indication: Vitamin supplementation
     Dosage: 1 DOSAGE FORM
     Route: 042
     Dates: start: 20230816
  3. FOLIC ACID [Concomitant]
     Active Substance: FOLIC ACID
     Indication: Hereditary neuropathic amyloidosis
     Dosage: 15 MILLIGRAM/DAY
     Route: 048
  4. MIYA-BM [Concomitant]
     Active Substance: CLOSTRIDIUM BUTYRICUM SPORES STRAIN M-55
     Indication: Hereditary neuropathic amyloidosis
     Dosage: 3 DOSAGE FORM/DAY
     Route: 048
  5. SODIUM CHLORIDE [Concomitant]
     Active Substance: SODIUM CHLORIDE
     Indication: Hereditary neuropathic amyloidosis
     Dosage: 3 GRAM/DAY
     Route: 048
  6. SODIUM FERROUS CITRATE [Concomitant]
     Active Substance: SODIUM FERROUS CITRATE
     Indication: Hereditary neuropathic amyloidosis
     Dosage: 100 MILLIGRAM/DAY
     Route: 048
  7. FAMOTIDINE [Concomitant]
     Active Substance: FAMOTIDINE
     Indication: Hereditary neuropathic amyloidosis
     Dosage: 20 MILLIGRAM/DAY
     Route: 048
  8. FEBUXOSTAT [Concomitant]
     Active Substance: FEBUXOSTAT
     Indication: Hereditary neuropathic amyloidosis
     Dosage: 20 MILLIGRAM/DAY
     Route: 048
  9. DROXIDOPA [Concomitant]
     Active Substance: DROXIDOPA
     Indication: Hereditary neuropathic amyloidosis
     Dosage: 900 MILLIGRAM/DAY
     Route: 048

REACTIONS (2)
  - Cardiac failure [Unknown]
  - Urinary tract infection [Unknown]

NARRATIVE: CASE EVENT DATE: 20230812
